FAERS Safety Report 21035322 (Version 1)
Quarter: 2022Q3

REPORT INFORMATION
  Report Type: Spontaneous
  Country: JP (occurrence: JP)
  Receive Date: 20220701
  Receipt Date: 20220701
  Transmission Date: 20221027
  Serious: Yes (Other)
  Sender: FDA-Public Use
  Company Number: JP-Merck Healthcare KGaA-9332289

PATIENT
  Age: 80 Year
  Sex: Male

DRUGS (6)
  1. ERBITUX [Suspect]
     Active Substance: CETUXIMAB
     Indication: Colon cancer
     Dosage: 400 MG/M2, WEEKLY (1/W)
     Route: 041
     Dates: start: 20220502
  2. ERBITUX [Suspect]
     Active Substance: CETUXIMAB
     Dosage: 250 MG/M2, WEEKLY (1/W)
     Route: 041
  3. ENCORAFENIB [Suspect]
     Active Substance: ENCORAFENIB
     Indication: Colon cancer
     Dosage: 300 MG, DAILY (1 DOSE DAILY)
     Route: 048
     Dates: start: 20220502
  4. ENCORAFENIB [Suspect]
     Active Substance: ENCORAFENIB
     Dosage: 225 MG, DAILY (1 DOSE DAILY)
     Route: 048
     Dates: start: 20220519, end: 20220526
  5. ENCORAFENIB [Suspect]
     Active Substance: ENCORAFENIB
     Dosage: UNK UNK, DAILY (1 DOSE DAILY)
     Route: 048
     Dates: start: 20220602
  6. ENTECAVIR [Concomitant]
     Active Substance: ENTECAVIR
     Indication: Chronic hepatitis B
     Dosage: UNK
     Route: 048

REACTIONS (1)
  - Vitreous detachment [Unknown]

NARRATIVE: CASE EVENT DATE: 20220526
